FAERS Safety Report 11641511 (Version 1)
Quarter: 2015Q4

REPORT INFORMATION
  Report Type: Spontaneous
  Country: CN (occurrence: CN)
  Receive Date: 20151019
  Receipt Date: 20151019
  Transmission Date: 20160304
  Serious: Yes (Other)
  Sender: FDA-Public Use
  Company Number: CN-PFIZER INC-2015353653

PATIENT
  Age: 36 Year
  Sex: Male
  Weight: 61 kg

DRUGS (2)
  1. CELEBREX [Suspect]
     Active Substance: CELECOXIB
     Indication: SCIATICA
     Dosage: 200 MG, 1X/DAY
     Route: 048
     Dates: start: 20150328, end: 20150328
  2. METHYLCOBALAMIN [Suspect]
     Active Substance: METHYLCOBALAMIN
     Indication: SCIATICA
     Dosage: 0.5 MG, 1X/DAY
     Route: 048
     Dates: start: 20150328, end: 20150328

REACTIONS (7)
  - Pruritus [Recovered/Resolved]
  - Laryngeal oedema [Recovered/Resolved]
  - Rash [Recovered/Resolved]
  - Cyanosis [Recovered/Resolved]
  - Hypersensitivity [Recovered/Resolved]
  - Flushing [Recovered/Resolved]
  - Urticaria [Recovered/Resolved]

NARRATIVE: CASE EVENT DATE: 20150328
